FAERS Safety Report 6477830-8 (Version None)
Quarter: 2009Q4

REPORT INFORMATION
  Report Type: 
  Country: None (occurrence: None)
  Receive Date: 20091207
  Receipt Date: 20091126
  Transmission Date: 20100525
  Serious: Yes (Hospitalization)
  Sender: FDA-Public Use
  Company Number: JP-JNJFOC-20091107623

PATIENT
  Sex: Male

DRUGS (1)
  1. CRAVIT [Suspect]
     Indication: PNEUMONIA
     Route: 048
     Dates: start: 20090914, end: 20090925

REACTIONS (2)
  - PLEURAL EFFUSION [None]
  - RENAL FAILURE ACUTE [None]
